FAERS Safety Report 10252144 (Version 2)
Quarter: 2014Q3

REPORT INFORMATION
  Report Type: Spontaneous
  Country: GB (occurrence: None)
  Receive Date: 20140619
  Receipt Date: 20140722
  Transmission Date: 20150326
  Serious: Yes (Other)
  Sender: FDA-Public Use
  Company Number: AUR-APL-2014-06359

PATIENT
  Sex: Male

DRUGS (2)
  1. FLUOXETINE [Suspect]
     Active Substance: FLUOXETINE\FLUOXETINE HYDROCHLORIDE
     Indication: PRODUCT USED FOR UNKNOWN INDICATION
     Dates: start: 201303, end: 20140501
  2. MIRTAZAPINE (MIRTAZAPINE) [Concomitant]
     Active Substance: MIRTAZAPINE

REACTIONS (28)
  - Cold sweat [None]
  - Panic attack [None]
  - Nightmare [None]
  - Feeling abnormal [None]
  - Mania [None]
  - Agitation [None]
  - Drug withdrawal syndrome [None]
  - Asthenia [None]
  - Paraesthesia [None]
  - Suicidal ideation [None]
  - Hyperhidrosis [None]
  - Dysuria [None]
  - Abnormal behaviour [None]
  - Epistaxis [None]
  - Dizziness [None]
  - Sleep disorder [None]
  - Palpitations [None]
  - Somnolence [None]
  - Photophobia [None]
  - Myalgia [None]
  - Tremor [None]
  - Confusional state [None]
  - Anxiety [None]
  - Intentional overdose [None]
  - Musculoskeletal stiffness [None]
  - Irritability [None]
  - Restlessness [None]
  - Dysstasia [None]
